FAERS Safety Report 23262080 (Version 2)
Quarter: 2023Q4

REPORT INFORMATION
  Report Type: Spontaneous
  Country: PL (occurrence: PL)
  Receive Date: 20231205
  Receipt Date: 20231206
  Transmission Date: 20240109
  Serious: Yes (Other)
  Sender: FDA-Public Use
  Company Number: PL-AMGEN-POLSP2023213196

PATIENT
  Age: 65 Year
  Sex: Male

DRUGS (4)
  1. PANITUMUMAB [Suspect]
     Active Substance: PANITUMUMAB
     Indication: Colorectal cancer metastatic
     Dosage: UNK UNK, CYCLICAL (8 CYCLES)
     Route: 065
     Dates: start: 20211115, end: 20220301
  2. LEUCOVORIN [Concomitant]
     Active Substance: LEUCOVORIN\LEUCOVORIN CALCIUM
     Indication: Colorectal cancer metastatic
     Dosage: UNK UNK, CYCLICAL
     Dates: start: 20211115, end: 202310
  3. FLUOROURACIL [Concomitant]
     Active Substance: FLUOROURACIL
     Indication: Colorectal cancer metastatic
     Dosage: UNK UNK, CYCLICAL
     Dates: start: 20211115, end: 202310
  4. OXALIPLATIN [Concomitant]
     Active Substance: OXALIPLATIN
     Indication: Colorectal cancer metastatic
     Dosage: UNK UNK, CYCLICAL
     Dates: start: 20211115, end: 20220810

REACTIONS (9)
  - Neutropenia [Unknown]
  - Colorectal cancer metastatic [Unknown]
  - Acne [Unknown]
  - Erythema [Unknown]
  - Rash pustular [Unknown]
  - Petechiae [Unknown]
  - Anaemia [Unknown]
  - Skin toxicity [Unknown]
  - Therapy partial responder [Unknown]

NARRATIVE: CASE EVENT DATE: 20210101
